FAERS Safety Report 7581510-5 (Version None)
Quarter: 2011Q2

REPORT INFORMATION
  Report Type: 
  Country: None (occurrence: None)
  Receive Date: 20110629
  Receipt Date: 20110621
  Transmission Date: 20111010
  Serious: Yes (Other)
  Sender: FDA-Public Use
  Company Number: PHHY2011JP55842

PATIENT
  Age: 5 Year

DRUGS (2)
  1. TEGRETOL [Suspect]
     Dosage: 150 MG, DAILY
     Route: 048
  2. TEGRETOL [Suspect]
     Dosage: 100 MG, DAILY
     Route: 048

REACTIONS (1)
  - COMA [None]
